FAERS Safety Report 10642212 (Version 4)
Quarter: 2015Q3

REPORT INFORMATION
  Report Type: Spontaneous
  Country: TR (occurrence: TR)
  Receive Date: 20141210
  Receipt Date: 20150709
  Transmission Date: 20151125
  Serious: Yes (Hospitalization, Other)
  Sender: FDA-Public Use
  Company Number: TR-AMGEN-TURSP2014095236

PATIENT
  Age: 67 Year
  Sex: Male

DRUGS (2)
  1. ENBREL [Suspect]
     Active Substance: ETANERCEPT
     Dosage: 50 MG, WEEKLY
     Route: 065
  2. ENBREL [Suspect]
     Active Substance: ETANERCEPT
     Indication: PSORIATIC ARTHROPATHY
     Dosage: 50 MG, WEEKLY
     Route: 058
     Dates: start: 20140707, end: 20141106

REACTIONS (10)
  - Joint stiffness [Recovering/Resolving]
  - Speech disorder [Unknown]
  - Blood creatinine increased [Not Recovered/Not Resolved]
  - Pulmonary oedema [Not Recovered/Not Resolved]
  - General physical health deterioration [Recovered/Resolved]
  - Cholelithiasis [Not Recovered/Not Resolved]
  - Mobility decreased [Unknown]
  - Blood urea increased [Not Recovered/Not Resolved]
  - Arthralgia [Recovering/Resolving]
  - C-reactive protein increased [Not Recovered/Not Resolved]

NARRATIVE: CASE EVENT DATE: 2014
